FAERS Safety Report 17732495 (Version 1)
Quarter: 2020Q2

REPORT INFORMATION
  Report Type: Spontaneous
  Country: CA (occurrence: CA)
  Receive Date: 20200501
  Receipt Date: 20200501
  Transmission Date: 20200714
  Serious: Yes (Hospitalization, Disabling)
  Sender: FDA-Public Use
  Company Number: CA-NEBO-PC005611

PATIENT
  Age: 81 Year
  Sex: Female
  Weight: 56 kg

DRUGS (1)
  1. MONOFERRIC [Suspect]
     Active Substance: FERRIC DERISOMALTOSE
     Indication: PRODUCT USED FOR UNKNOWN INDICATION
     Dosage: ONCE
     Route: 042

REACTIONS (5)
  - Back pain [Unknown]
  - Dizziness [Unknown]
  - Gait inability [Unknown]
  - Hypokinesia [Unknown]
  - Movement disorder [Unknown]
